FAERS Safety Report 14432807 (Version 2)
Quarter: 2018Q1

REPORT INFORMATION
  Report Type: Report from Study
  Country: AU (occurrence: AU)
  Receive Date: 20180124
  Receipt Date: 20180202
  Transmission Date: 20180509
  Serious: Yes (Hospitalization)
  Sender: FDA-Public Use
  Company Number: AU-PFIZER INC-2018028186

PATIENT
  Age: 73 Year
  Sex: Female
  Weight: 92 kg

DRUGS (17)
  1. AVELUMAB [Suspect]
     Active Substance: AVELUMAB
     Dosage: UNK
  2. AMLODIPINE [Concomitant]
     Active Substance: AMLODIPINE BESYLATE
     Dosage: 10 MG, 1X/DAY
     Dates: start: 20171206
  3. OMEPRAZOLE. [Concomitant]
     Active Substance: OMEPRAZOLE
     Indication: DUODENAL ULCER
     Dosage: 20 MG, 1X/DAY
     Route: 046
     Dates: start: 2011
  4. VENTOLIN [Concomitant]
     Active Substance: ALBUTEROL SULFATE
     Indication: LARYNGOSPASM
     Dosage: 5 MG, UNK
     Route: 055
     Dates: start: 20171025, end: 20171025
  5. PHENERGAN [Concomitant]
     Active Substance: PROMETHAZINE HYDROCHLORIDE
     Indication: LARYNGOSPASM
     Dosage: 12.5 MG, 1X/DAY
     Route: 042
     Dates: start: 20171025, end: 20171025
  6. RAMIPRIL. [Concomitant]
     Active Substance: RAMIPRIL
     Indication: HYPERTENSION
     Dosage: 5 MG, 1X/DAY
     Route: 048
     Dates: start: 20171126
  7. AVELUMAB [Suspect]
     Active Substance: AVELUMAB
     Dosage: UNK
  8. AVELUMAB [Suspect]
     Active Substance: AVELUMAB
     Dosage: UNK
  9. FLUOROURACIL. [Suspect]
     Active Substance: FLUOROURACIL
     Indication: ADENOCARCINOMA GASTRIC
     Dosage: 5382 MG, ONCE EVERY TWO WEEKS
     Route: 042
     Dates: start: 20170927, end: 20171206
  10. LEUCOVORIN /00566701/ [Concomitant]
     Active Substance: LEUCOVORIN
     Indication: ADENOCARCINOMA GASTRIC
     Dosage: UNK
     Route: 042
  11. THYROXINE [Concomitant]
     Active Substance: LEVOTHYROXINE
     Indication: HYPOTHYROIDISM
     Dosage: 50 UG, 1X/DAY
     Route: 048
     Dates: start: 2011, end: 20180113
  12. AVELUMAB [Suspect]
     Active Substance: AVELUMAB
     Dosage: UNK
  13. OXALIPLATIN. [Suspect]
     Active Substance: OXALIPLATIN
     Indication: ADENOCARCINOMA GASTRIC
     Dosage: 176 MG, UNK
     Route: 042
     Dates: start: 20170927, end: 20171122
  14. GTN [Concomitant]
     Active Substance: NITROGLYCERIN
     Indication: HYPERTENSION
     Dosage: 25 UG, UNK
     Route: 062
     Dates: start: 20171129, end: 20171129
  15. AMLODIPINE [Concomitant]
     Active Substance: AMLODIPINE BESYLATE
     Indication: HYPERTENSION
     Dosage: 5 MG, 1X/DAY
     Route: 048
     Dates: start: 20171129, end: 20171206
  16. AVELUMAB [Suspect]
     Active Substance: AVELUMAB
     Indication: ADENOCARCINOMA GASTRIC
     Dosage: 924 MG, ONCE EVERY TWO WEEKS
     Route: 042
     Dates: start: 20171227
  17. HYDROCORTISONE. [Concomitant]
     Active Substance: HYDROCORTISONE
     Indication: LARYNGOSPASM
     Dosage: 100 MG, 1X/DAY
     Route: 042
     Dates: start: 20171025, end: 20171025

REACTIONS (1)
  - Hyperthyroidism [Recovered/Resolved]

NARRATIVE: CASE EVENT DATE: 20180111
